FAERS Safety Report 10567580 (Version 1)
Quarter: 2014Q4

REPORT INFORMATION
  Report Type: Spontaneous
  Country: US (occurrence: None)
  Receive Date: 20141105
  Receipt Date: 20141105
  Transmission Date: 20150529
  Serious: Yes (Hospitalization)
  Sender: FDA-Public Use
  Company Number: None

PATIENT
  Age: 14 Year
  Sex: Female
  Weight: 55.6 kg

DRUGS (6)
  1. CYCLOPHOSPHAMIDE. [Suspect]
     Active Substance: CYCLOPHOSPHAMIDE
     Dates: end: 20140930
  2. VINCRISTINE SULFATE. [Suspect]
     Active Substance: VINCRISTINE SULFATE
     Dates: end: 20141021
  3. ONCASPAR [Suspect]
     Active Substance: PEGASPARGASE
     Dates: end: 20141014
  4. METHOTREXATE [Suspect]
     Active Substance: METHOTREXATE
     Dates: end: 20141007
  5. CYTARABINE. [Suspect]
     Active Substance: CYTARABINE
     Dates: end: 20141010
  6. THIOGUANINE [Suspect]
     Active Substance: THIOGUANINE
     Dates: end: 20141013

REACTIONS (9)
  - Haemodialysis [None]
  - Hypotension [None]
  - Gallbladder necrosis [None]
  - Chest pain [None]
  - Pulmonary embolism [None]
  - Colitis [None]
  - Dyspnoea [None]
  - Peritoneal necrosis [None]
  - Multi-organ failure [None]

NARRATIVE: CASE EVENT DATE: 20141008
